FAERS Safety Report 4417849-1 (Version None)
Quarter: 2004Q2

REPORT INFORMATION
  Report Type: 
  Country: None (occurrence: None)
  Receive Date: 20040621
  Receipt Date: 20040514
  Transmission Date: 20050107
  Serious: Yes (Other)
  Sender: FDA-Public Use
  Company Number: 2004032560

PATIENT

DRUGS (1)
  1. VFEND [Suspect]
     Indication: INFECTION

REACTIONS (3)
  - RASH [None]
  - VISUAL DISTURBANCE [None]
  - WEIGHT DECREASED [None]
